FAERS Safety Report 18034685 (Version 1)
Quarter: 2020Q3

REPORT INFORMATION
  Report Type: Report from Study
  Country: None (occurrence: US)
  Receive Date: 20200716
  Receipt Date: 20200716
  Transmission Date: 20201103
  Serious: Yes (Other)
  Sender: FDA-Public Use
  Company Number: US-ABBVIE-20K-163-3480295-00

PATIENT
  Sex: Male
  Weight: 116.68 kg

DRUGS (1)
  1. HUMIRA [Suspect]
     Active Substance: ADALIMUMAB
     Indication: HIDRADENITIS
     Route: 058
     Dates: start: 2017

REACTIONS (3)
  - Meniscus injury [Recovering/Resolving]
  - Mobility decreased [Recovering/Resolving]
  - Joint injury [Recovering/Resolving]
